FAERS Safety Report 9861873 (Version 1)
Quarter: 2014Q1

REPORT INFORMATION
  Report Type: Spontaneous
  Country: US (occurrence: KE)
  Receive Date: 20140203
  Receipt Date: 20140203
  Transmission Date: 20141002
  Serious: Yes (Other)
  Sender: FDA-Public Use
  Company Number: US-BAYER-2014-014667

PATIENT
  Age: 58 Year
  Sex: Male

DRUGS (1)
  1. BAYER ASPIRIN CARDIO [Suspect]

REACTIONS (2)
  - Coronary artery occlusion [None]
  - Skin haemorrhage [None]
